FAERS Safety Report 9003186 (Version 1)
Quarter: 2013Q1

REPORT INFORMATION
  Report Type: Report from Study
  Country: US (occurrence: US)
  Receive Date: 20130108
  Receipt Date: 20130108
  Transmission Date: 20140127
  Serious: Yes (Life-Threatening, Hospitalization)
  Sender: FDA-Public Use
  Company Number: US-ACTELION-A-NJ2012-77227

PATIENT
  Age: 61 Year
  Sex: Female

DRUGS (3)
  1. TRACLEER [Suspect]
     Indication: PULMONARY ARTERIAL HYPERTENSION
     Dosage: UNK
     Route: 048
     Dates: start: 200410, end: 20121214
  2. REMODULIN [Suspect]
  3. REVATIO [Concomitant]
     Dosage: UNK

REACTIONS (8)
  - Tricuspid valve repair [Recovered/Resolved]
  - Mitral valve repair [Recovered/Resolved]
  - Cardiac disorder [Recovered/Resolved]
  - Fluid retention [Recovered/Resolved]
  - Oedema [Recovered/Resolved]
  - Dyspnoea [Recovered/Resolved]
  - Weight decreased [None]
  - General physical health deterioration [None]
